FAERS Safety Report 4829939-X (Version None)
Quarter: 2005Q4

REPORT INFORMATION
  Report Type: 
  Country: None (occurrence: None)
  Receive Date: 20051115
  Receipt Date: 20051101
  Transmission Date: 20060501
  Serious: Yes (Hospitalization)
  Sender: FDA-Public Use
  Company Number: DEU-2005-0001754

PATIENT
  Age: 55 Year
  Sex: Male

DRUGS (3)
  1. OXYCODONE HCL [Suspect]
     Indication: PAIN
     Dosage: 40 MG, BID, ORAL
     Route: 048
  2. PALLADONE [Suspect]
     Indication: PAIN
     Dosage: PRN, ORAL
     Route: 048
  3. ANTIDEPRESSANTS [Concomitant]

REACTIONS (3)
  - PERSONALITY CHANGE [None]
  - PSYCHOTIC DISORDER [None]
  - SUICIDE ATTEMPT [None]
